FAERS Safety Report 4358773-2 (Version None)
Quarter: 2004Q2

REPORT INFORMATION
  Report Type: 
  Country: None (occurrence: None)
  Receive Date: 20040511
  Receipt Date: 20040503
  Transmission Date: 20050107
  Serious: No
  Sender: FDA-Public Use
  Company Number: 2003180817US

PATIENT
  Sex: 0

DRUGS (2)
  1. ZYVOX [Suspect]
  2. PROZAC [Concomitant]

REACTIONS (1)
  - BRADYCARDIA [None]
